FAERS Safety Report 18088608 (Version 2)
Quarter: 2020Q3

REPORT INFORMATION
  Report Type: Spontaneous
  Country: CA (occurrence: CA)
  Receive Date: 20200729
  Receipt Date: 20200819
  Transmission Date: 20201103
  Serious: Yes (Other)
  Sender: FDA-Public Use
  Company Number: CA-ANIPHARMA-2020-CA-001442

PATIENT
  Age: 56 Year
  Sex: Female

DRUGS (11)
  1. DOMPERIDONE [Concomitant]
     Active Substance: DOMPERIDONE
     Dosage: AN UNKNOWN DOSE AND FREQUENCY
     Route: 065
  2. CANDESARTAN. [Suspect]
     Active Substance: CANDESARTAN
     Indication: MIGRAINE
     Dosage: AN UNKNOWN DOSE AND FREQUENCY
     Route: 048
  3. TOPIRAMATE. [Suspect]
     Active Substance: TOPIRAMATE
     Dosage: AN UNKNOWN DOSE AND FREQUENCY
     Route: 065
  4. PROPRANOLOL [Suspect]
     Active Substance: PROPRANOLOL HYDROCHLORIDE
     Dosage: AN UNKNOWN DOSE AND FREQUENCY
  5. AMITRIPTYLINE [Suspect]
     Active Substance: AMITRIPTYLINE
     Dosage: AN UNKNOWN DOSE AND FREQUENCY
     Route: 065
  6. MIRTAZAPINE. [Suspect]
     Active Substance: MIRTAZAPINE
     Dosage: AN UNKNOWN DOSE AND FREQUENCY
     Route: 065
  7. ONDANSETRON [Suspect]
     Active Substance: ONDANSETRON
     Dosage: AN UNKNOWN DOSE AND FREQUENCY
     Route: 065
  8. OXYCODONE [Suspect]
     Active Substance: OXYCODONE
     Dosage: AN UNKNOWN DOSE AND FREQUENCY
     Route: 065
  9. PERINDOPRIL ERBUMINE. [Suspect]
     Active Substance: PERINDOPRIL ERBUMINE
     Dosage: AN UNKNOWN DOSE AND FREQUENCY
     Route: 065
  10. GABAPENTIN. [Suspect]
     Active Substance: GABAPENTIN
     Dosage: AN UNKNOWN DOSE AND FREQUENCY
     Route: 065
  11. DULOXETINE. [Suspect]
     Active Substance: DULOXETINE
     Dosage: AN UNKNOWN DOSE AND FREQUENCY
     Route: 065

REACTIONS (14)
  - Depressed level of consciousness [Unknown]
  - Contraindicated product administered [Unknown]
  - Product use in unapproved indication [Unknown]
  - Drug ineffective [Unknown]
  - Nephropathy toxic [Unknown]
  - Fall [Unknown]
  - Toxicity to various agents [Unknown]
  - Electrocardiogram QT prolonged [Unknown]
  - Drug intolerance [Unknown]
  - Drug ineffective for unapproved indication [Unknown]
  - Drug interaction [Unknown]
  - Hypertension [Unknown]
  - Mental disorder [Unknown]
  - Serotonin syndrome [Unknown]
